FAERS Safety Report 12671610 (Version 1)
Quarter: 2016Q3

REPORT INFORMATION
  Report Type: Spontaneous
  Country: GB (occurrence: GB)
  Receive Date: 20160822
  Receipt Date: 20160822
  Transmission Date: 20161109
  Serious: Yes (Other)
  Sender: FDA-Public Use
  Company Number: GB-TEVA-684721ACC

PATIENT
  Age: 83 Year
  Sex: Male

DRUGS (11)
  1. WARFARIN [Concomitant]
     Active Substance: WARFARIN
  2. BUMETANIDE. [Concomitant]
     Active Substance: BUMETANIDE
  3. SENNA [Concomitant]
     Active Substance: SENNA LEAF\SENNOSIDES\SENNOSIDES A AND B
  4. GLICLAZIDE [Concomitant]
     Active Substance: GLICLAZIDE
  5. METOLAZONE. [Concomitant]
     Active Substance: METOLAZONE
  6. FINASTERIDE. [Concomitant]
     Active Substance: FINASTERIDE
  7. FLUCLOXACILLIN [Concomitant]
     Active Substance: FLUCLOXACILLIN
     Dates: start: 20160724
  8. LAXIDO [Concomitant]
     Active Substance: POLYETHYLENE GLYCOL 3350\POTASSIUM CHLORIDE\SODIUM BICARBONATE\SODIUM CHLORIDE
  9. AMIODARONE [Suspect]
     Active Substance: AMIODARONE
     Indication: ATRIAL FIBRILLATION
     Dosage: 100 MILLIGRAM DAILY;
     Route: 048
     Dates: end: 20160731
  10. ACLIDINIUM [Concomitant]
     Active Substance: ACLIDINIUM BROMIDE
  11. SAXAGLIPTIN [Concomitant]
     Active Substance: SAXAGLIPTIN

REACTIONS (6)
  - Renal injury [Unknown]
  - Electrocardiogram U-wave abnormality [Unknown]
  - Dehydration [Unknown]
  - Electrocardiogram QT prolonged [Unknown]
  - General physical health deterioration [Unknown]
  - Cellulitis [Unknown]

NARRATIVE: CASE EVENT DATE: 20160731
